FAERS Safety Report 16414410 (Version 2)
Quarter: 2019Q2

REPORT INFORMATION
  Report Type: Spontaneous
  Country: SE (occurrence: SE)
  Receive Date: 20190611
  Receipt Date: 20190621
  Transmission Date: 20190711
  Serious: Yes (Other)
  Sender: FDA-Public Use
  Company Number: SE-MYLANLABS-15X-150-1219575-00

PATIENT
  Age: 54 Year
  Sex: Female

DRUGS (3)
  1. BRUFEN RETARD 800 MG DEPOTTABLETTER [Suspect]
     Active Substance: IBUPROFEN
     Indication: SPONDYLOARTHROPATHY
     Dosage: 800 MILLIGRAM, BID,1600MILLIGRAMBID
     Route: 048
     Dates: start: 20080924, end: 201503
  2. ENBREL [Suspect]
     Active Substance: ETANERCEPT
     Indication: SPONDYLOARTHROPATHY
     Dosage: 50 MILLIGRAM, QW
     Route: 058
     Dates: start: 20110112, end: 201503
  3. PREDNISOLONE. [Suspect]
     Active Substance: PREDNISOLONE
     Indication: SPONDYLOARTHROPATHY
     Dosage: 1 DOSAGE FORM, QD,1-2 TABLETS PER DAY (1-2X1)
     Route: 048
     Dates: start: 20080702

REACTIONS (4)
  - Dyspepsia [Recovered/Resolved]
  - Abdominal pain [Recovered/Resolved]
  - Gastric neoplasm [Recovered/Resolved]
  - Nausea [Recovered/Resolved]

NARRATIVE: CASE EVENT DATE: 20140508
